FAERS Safety Report 5847794-6 (Version None)
Quarter: 2008Q3

REPORT INFORMATION
  Report Type: 
  Country: None (occurrence: None)
  Receive Date: 20080815
  Receipt Date: 20080815
  Transmission Date: 20090109
  Serious: Yes (Hospitalization)
  Sender: FDA-Public Use
  Company Number: None

PATIENT
  Sex: Female
  Weight: 111.8 kg

DRUGS (14)
  1. TOPOTECAN [Suspect]
     Dosage: 24MG
  2. GLIPIZIDE [Concomitant]
  3. METAFORMIN ER [Concomitant]
  4. COMPAZINE [Concomitant]
  5. CYMBALTA [Concomitant]
  6. LYCERIA [Concomitant]
  7. NAPROXN [Concomitant]
  8. REQUIP [Concomitant]
  9. RESTORIL [Concomitant]
  10. TRIAMTERENE [Concomitant]
  11. WARFARIN SODIUM [Concomitant]
  12. XANAX [Concomitant]
  13. ZOFRAN [Concomitant]
  14. ZOLPIDEM [Concomitant]

REACTIONS (4)
  - BLOOD PRESSURE INCREASED [None]
  - CONSTIPATION [None]
  - NAUSEA [None]
  - VOMITING [None]
